FAERS Safety Report 7878380 (Version 3)
Quarter: 2013Q4

REPORT INFORMATION
  Report Type: Spontaneous
  Country: US (occurrence: US)
  Receive Date: 20110330
  Receipt Date: 20131101
  Transmission Date: 20140711
  Serious: Yes (Hospitalization, Other)
  Sender: FDA-Public Use
  Company Number: US-BAYER-201029746NA

PATIENT
  Age: 46 Year
  Sex: Female
  Weight: 77.1 kg

DRUGS (24)
  1. YAZ [Suspect]
     Dosage: UNK
     Route: 048
     Dates: start: 200610
  2. DARVOCET [Concomitant]
     Indication: FIBROMYALGIA
     Dosage: 100 MG, PRN
     Route: 048
  3. BENTYL [Concomitant]
     Indication: GASTRITIS
     Dosage: 20 MG, QD
     Route: 048
  4. IBUPROFEN [IBUPROFEN] [Concomitant]
     Dosage: 600 MG, BID
     Route: 048
  5. ALBUTEROL [Concomitant]
     Indication: ASTHMA
     Dosage: 2 PUFF(S), PRN
     Route: 045
  6. PRO-AIR [Concomitant]
     Indication: ASTHMA
  7. ASPIRIN [Concomitant]
     Indication: CARDIOVASCULAR EVENT PROPHYLAXIS
     Dosage: 81 MG, UNK
     Route: 048
     Dates: start: 2008
  8. METFORMIN [Concomitant]
     Indication: DIABETES MELLITUS
     Dosage: 500 MG, QD
     Route: 048
     Dates: start: 200608
  9. CYANOCOBALAMIN [Concomitant]
     Indication: VITAMIN SUPPLEMENTATION
     Dosage: UNK UNK, Q1MON
  10. NEXIUM [Concomitant]
     Indication: GASTROOESOPHAGEAL REFLUX DISEASE
     Dosage: 40 MG, QD
     Dates: start: 200608
  11. GLIPIZIDE [Concomitant]
     Indication: DIABETES MELLITUS
     Dosage: UNK
     Route: 048
     Dates: start: 200608, end: 200712
  12. CYMBALTA [Concomitant]
     Indication: FIBROMYALGIA
     Dosage: 60 MG, QD
     Dates: start: 200709
  13. FLUCONAZOLE [Concomitant]
     Indication: PRODUCT USED FOR UNKNOWN INDICATION
     Dosage: 150 MG, ONCE
     Route: 048
     Dates: start: 20080324, end: 20080324
  14. PENICILLIN [Concomitant]
     Indication: PRODUCT USED FOR UNKNOWN INDICATION
     Dosage: 500 MG, TID
     Route: 048
     Dates: start: 20080416
  15. ZELNORM [Concomitant]
     Indication: PRODUCT USED FOR UNKNOWN INDICATION
     Dosage: UNK
     Dates: start: 20070126
  16. PHENERGAN [Concomitant]
     Indication: PRODUCT USED FOR UNKNOWN INDICATION
     Dosage: UNK
     Dates: start: 20070126
  17. LOESTRIN [Concomitant]
     Indication: CONTRACEPTION
     Dosage: UNK
     Dates: start: 200802
  18. LORATADINE [Concomitant]
     Dosage: 10 MG, QD
     Route: 048
  19. FOLIC ACID [Concomitant]
  20. OSCAL D [Concomitant]
     Dosage: 500 MG, UNK
     Route: 048
  21. DICYCLOMINE [Concomitant]
     Dosage: 10 MG, UNK
  22. REGLAN [Concomitant]
  23. DARVOCET [Concomitant]
  24. ADVAIR [Concomitant]

REACTIONS (2)
  - Biliary dyskinesia [None]
  - Abdominal pain [None]
